FAERS Safety Report 7757077-5 (Version None)
Quarter: 2011Q3

REPORT INFORMATION
  Report Type: 
  Country: None (occurrence: None)
  Receive Date: 20110916
  Receipt Date: 20110905
  Transmission Date: 20111222
  Serious: Yes (Hospitalization)
  Sender: FDA-Public Use
  Company Number: GB-PURDUE-GBR-2011-0008662

PATIENT
  Sex: Female

DRUGS (13)
  1. OXYCONTIN [Suspect]
     Dosage: 20 MG, BID
     Route: 048
     Dates: start: 20110301
  2. LEVOTHYROXINE SODIUM [Concomitant]
     Dosage: 25 MCG, DAILY
     Route: 065
  3. GLICLAZIDE [Concomitant]
     Dosage: 40 MG, BID
     Route: 065
  4. SENNA                              /00142201/ [Concomitant]
     Dosage: 2 TABLET, DAILY
     Route: 065
  5. ORAMORPH SR [Suspect]
  6. RANITIDINE [Concomitant]
     Dosage: 150 MG, BID
     Route: 065
  7. ACETAMINOPHEN [Concomitant]
     Dosage: 1 G, QID
     Route: 065
  8. OXYCONTIN [Suspect]
     Indication: PAIN
     Dosage: 20 MG, QID
     Route: 048
  9. CITALOPRAM HYDROBROMIDE [Concomitant]
     Dosage: 30 MG, DAILY
     Route: 065
  10. DALTEPARIN SODIUM [Concomitant]
     Dosage: 5000 UNIT, DAILY
     Route: 065
  11. CANDESARTAN CILEXETIL [Concomitant]
     Dosage: 16 MG, DAILY
     Route: 065
  12. CHLORPHENIRAMINE MALEATE [Concomitant]
     Dosage: 4 MG, PRN
     Route: 065
  13. MORPHINE SULFATE [Suspect]
     Indication: PAIN
     Dosage: 10-20 MG, PRN
     Route: 048
     Dates: start: 20110813, end: 20110817

REACTIONS (5)
  - GASTROINTESTINAL MOTILITY DISORDER [None]
  - OEDEMA PERIPHERAL [None]
  - BLADDER DISORDER [None]
  - JOINT SWELLING [None]
  - OEDEMA [None]
